FAERS Safety Report 5386723-9 (Version None)
Quarter: 2007Q3

REPORT INFORMATION
  Report Type: 
  Country: None (occurrence: None)
  Receive Date: 20070713
  Receipt Date: 20070705
  Transmission Date: 20080115
  Serious: Yes (Other)
  Sender: FDA-Public Use
  Company Number: JP-ASTRAZENECA-2007AP04160

PATIENT
  Age: 83 Year
  Sex: Female

DRUGS (5)
  1. NAROPIN [Suspect]
     Indication: PAIN
     Dosage: CONTINUOUS EPIDURAL BLOCK 2 - 4 ML PER HOUR
     Route: 008
  2. NAROPIN [Suspect]
     Dosage: GIVEN 1 - 2 DAYS INTO EPIDURAL SPACE
     Route: 008
  3. NAROPIN [Suspect]
     Route: 008
  4. ACYCLOVIR [Concomitant]
     Indication: HERPES ZOSTER
  5. DICLOFENAC [Concomitant]
     Dosage: ADMINISTERED WITH CONTINUOUS ROPIVACAINE EPIDURAL BLOCK
     Route: 041

REACTIONS (2)
  - SOMATOFORM DISORDER [None]
  - TRANSIENT ISCHAEMIC ATTACK [None]
